FAERS Safety Report 5147399-9 (Version None)
Quarter: 2006Q4

REPORT INFORMATION
  Report Type: 
  Country: None (occurrence: None)
  Receive Date: 20061106
  Receipt Date: 20061027
  Transmission Date: 20070319
  Serious: Yes (Other)
  Sender: FDA-Public Use
  Company Number: 2006132331

PATIENT
  Sex: Female
  Weight: 99.3377 kg

DRUGS (5)
  1. SERTRALINE [Suspect]
     Indication: ABNORMAL BEHAVIOUR
     Dosage: 100 MG (100 MG, QD; EVERY MORNING); ORAL
     Route: 048
     Dates: start: 20060901
  2. SERTRALINE [Suspect]
     Indication: DEPRESSION
     Dosage: 100 MG (100 MG, QD; EVERY MORNING); ORAL
     Route: 048
     Dates: start: 20060901
  3. METFORMIN [Concomitant]
  4. HUMALOG [Concomitant]
  5. LANTUS [Concomitant]

REACTIONS (3)
  - BLOOD GLUCOSE INCREASED [None]
  - GLYCOSYLATED HAEMOGLOBIN INCREASED [None]
  - THERAPEUTIC RESPONSE UNEXPECTED WITH DRUG SUBSTITUTION [None]
